FAERS Safety Report 25262826 (Version 1)
Quarter: 2025Q2

REPORT INFORMATION
  Report Type: Spontaneous
  Country: MX (occurrence: MX)
  Receive Date: 20250502
  Receipt Date: 20250502
  Transmission Date: 20250716
  Serious: Yes (Hospitalization, Other)
  Sender: ALKEM
  Company Number: MX-ALKEM LABORATORIES LIMITED-MX-ALKEM-2025-02542

PATIENT
  Age: 9 Year
  Sex: Female

DRUGS (8)
  1. CARBAMAZEPINE [Suspect]
     Active Substance: CARBAMAZEPINE
     Indication: Generalised tonic-clonic seizure
     Dosage: 200 MILLIGRAM, TID (EVERY 8 HOURS)
     Route: 065
  2. LAMOTRIGINE [Suspect]
     Active Substance: LAMOTRIGINE
     Indication: Generalised tonic-clonic seizure
     Dosage: UNK, BID (HALF-TABLET OF A 25 MILLIGRAM DISPERSIBLE TABLET EVERY 12 HOURS DURING THE FIRST TWO WEEKS
     Route: 065
  3. LAMOTRIGINE [Suspect]
     Active Substance: LAMOTRIGINE
     Dosage: UNK, BID (THREE-FOURTH OF A TABLET EVERY 12 HOURS)
     Route: 065
  4. LAMOTRIGINE [Suspect]
     Active Substance: LAMOTRIGINE
     Dosage: 25 MILLIGRAM, BID (ENTIRE TABLET)
     Route: 065
  5. METHYLPREDNISOLONE [Suspect]
     Active Substance: METHYLPREDNISOLONE
     Indication: Stevens-Johnson syndrome
     Dosage: 1 MILLIGRAM/KILOGRAM, QD (PER DAY)
     Route: 042
  6. VALPROIC ACID [Suspect]
     Active Substance: VALPROIC ACID
     Indication: Generalised tonic-clonic seizure
     Dosage: UNK, TID ((300-200-300 MILLIGRAM PER EVERY 8 HOURS)
     Route: 065
  7. CHAMOMILE [Concomitant]
     Active Substance: CHAMOMILE
     Indication: Conjunctival hyperaemia
     Route: 065
  8. CHAMOMILE [Concomitant]
     Active Substance: CHAMOMILE
     Indication: Purulent discharge

REACTIONS (3)
  - Stevens-Johnson syndrome [Recovering/Resolving]
  - Keratitis [Unknown]
  - Drug ineffective [Unknown]
